FAERS Safety Report 22849732 (Version 2)
Quarter: 2023Q4

REPORT INFORMATION
  Report Type: Spontaneous
  Country: None (occurrence: FR)
  Receive Date: 20230822
  Receipt Date: 20231004
  Transmission Date: 20240109
  Serious: Yes (Life-Threatening)
  Sender: FDA-Public Use
  Company Number: FR-AFSSAPSNT2023000908

PATIENT
  Age: 17 Year
  Sex: Female
  Weight: 63 kg

DRUGS (2)
  1. NITROUS OXIDE [Suspect]
     Active Substance: NITROUS OXIDE
     Indication: Sickle cell anaemia with crisis
     Route: 055
  2. OXYGEN [Suspect]
     Active Substance: OXYGEN
     Route: 055

REACTIONS (4)
  - Vitamin B12 deficiency [Recovered/Resolved]
  - Encephalitis [Not Recovered/Not Resolved]
  - Pancytopenia [Recovered/Resolved]
  - Hyperhomocysteinaemia [Recovered/Resolved]
